FAERS Safety Report 16702766 (Version 1)
Quarter: 2019Q3

REPORT INFORMATION
  Report Type: Spontaneous
  Country: US (occurrence: US)
  Receive Date: 20190814
  Receipt Date: 20190814
  Transmission Date: 20191004
  Serious: Yes (Hospitalization)
  Sender: FDA-Public Use
  Company Number: US-CURIUM-200800224

PATIENT
  Age: 83 Year
  Sex: Male
  Weight: 81 kg

DRUGS (4)
  1. ULTRA-TECHNEKOW DTE [Suspect]
     Active Substance: TECHNETIUM TC-99M SODIUM PERTECHNETATE
     Indication: RADIOISOTOPE SCAN
     Dosage: 2.5 MCI, SINGLE??NUMBER OF SEPARATE DOSAGES: 1
     Route: 037
     Dates: start: 20080318, end: 20080318
  2. LISINOPRIL. [Concomitant]
     Active Substance: LISINOPRIL
     Indication: PRODUCT USED FOR UNKNOWN INDICATION
     Route: 065
  3. DRAXIMAGE DTPA [Concomitant]
     Active Substance: TECHNETIUM TC-99M PENTETATE
     Indication: RADIOISOTOPE SCAN
     Dosage: UNK, SINGLE
     Route: 037
     Dates: start: 20080318, end: 20080318
  4. ASACOL [Concomitant]
     Active Substance: MESALAMINE
     Indication: PRODUCT USED FOR UNKNOWN INDICATION
     Route: 065

REACTIONS (5)
  - CNS ventriculitis [Recovering/Resolving]
  - Incorrect route of product administration [Unknown]
  - Headache [Recovering/Resolving]
  - Meningitis chemical [Recovering/Resolving]
  - Confusional state [Recovering/Resolving]

NARRATIVE: CASE EVENT DATE: 20080318
